FAERS Safety Report 4530393-6 (Version None)
Quarter: 2004Q4

REPORT INFORMATION
  Report Type: 
  Country: None (occurrence: None)
  Receive Date: 20041215
  Receipt Date: 20041202
  Transmission Date: 20050328
  Serious: Yes (Life-Threatening, Other)
  Sender: FDA-Public Use
  Company Number: JP-2004-034734

PATIENT
  Age: 80 Year
  Sex: Female

DRUGS (7)
  1. PROSCOPE 300 (IOPROMIDE) [Suspect]
     Dosage: INTRAVENOUS
     Route: 042
     Dates: start: 20041102, end: 20041102
  2. GASTER (FAMOTIDINE) [Concomitant]
  3. SUCRALFATE [Concomitant]
  4. SELBEX (TEPRENONE) [Concomitant]
  5. FERROMIA (FERROUS CITRATE) [Concomitant]
  6. RED BLOOD CELLS [Concomitant]
  7. DIOVANE (VALSARTAN) [Concomitant]

REACTIONS (10)
  - ANAPHYLACTIC SHOCK [None]
  - ATRIAL FIBRILLATION [None]
  - BLOOD PRESSURE DECREASED [None]
  - BLOOD PRESSURE INCREASED [None]
  - CARDIAC ARREST [None]
  - LOSS OF CONSCIOUSNESS [None]
  - PULSE ABSENT [None]
  - RESPIRATION ABNORMAL [None]
  - RESPIRATORY ARREST [None]
  - VENTRICULAR FIBRILLATION [None]
